FAERS Safety Report 8947961 (Version 1)
Quarter: 2012Q4

REPORT INFORMATION
  Report Type: 
  Country: CH (occurrence: None)
  Receive Date: 20121127
  Receipt Date: 20121127
  Transmission Date: 20130627
  Serious: Yes (Hospitalization, Other)
  Sender: FDA-Public Use
  Company Number: 2012SP003804

PATIENT
  Sex: Male

DRUGS (16)
  1. VANCOMYCIN [Suspect]
     Indication: PNEUMONIA BACTERIAL
     Route: 042
     Dates: start: 20121001, end: 20121001
  2. AUGMENTIN [Suspect]
     Indication: PNEUMONIA BACTERIAL
     Route: 042
     Dates: start: 20121005, end: 20121009
  3. TAVANIC [Suspect]
     Route: 048
     Dates: start: 20121003, end: 20121005
  4. INVANZ [Suspect]
     Route: 042
     Dates: start: 20121001, end: 20121002
  5. INSULATARD-X [Concomitant]
  6. NOVORAPID [Concomitant]
  7. ASPIRIN CARDIO [Concomitant]
  8. ATACAND [Concomitant]
  9. DILATREND [Concomitant]
  10. ADALAT CR [Concomitant]
  11. TOREM [Concomitant]
  12. CALCIUM ACETATE [Concomitant]
  13. RENAGEL [Concomitant]
  14. PURSANA [Concomitant]
  15. VI-DE 3 [Concomitant]
  16. ACETAMINOPHEN [Concomitant]

REACTIONS (5)
  - Confusional state [None]
  - Hallucination [None]
  - Delirium [None]
  - Muscle contractions involuntary [None]
  - General physical health deterioration [None]
